FAERS Safety Report 25623017 (Version 1)
Quarter: 2025Q3

REPORT INFORMATION
  Report Type: Spontaneous
  Country: US (occurrence: US)
  Receive Date: 20250730
  Receipt Date: 20250730
  Transmission Date: 20251020
  Serious: No
  Sender: GALPHARM INTERNATIONAL
  Company Number: US-PERRIGO-25US004004

PATIENT
  Age: 66 Year
  Sex: Female
  Weight: 49.887 kg

DRUGS (16)
  1. LORATADINE [Suspect]
     Active Substance: LORATADINE
     Indication: Rhinorrhoea
     Route: 048
     Dates: start: 2024, end: 20250312
  2. LORATADINE [Suspect]
     Active Substance: LORATADINE
     Indication: Sneezing
     Dosage: 10 MG, QD
     Route: 048
     Dates: start: 20250313, end: 20250326
  3. LORATADINE [Suspect]
     Active Substance: LORATADINE
     Indication: Hypersensitivity
     Dosage: 10 MG, QAM
     Route: 048
     Dates: start: 20250327, end: 20250327
  4. MUCINEX [Concomitant]
     Active Substance: GUAIFENESIN
     Indication: Cough
     Route: 065
     Dates: start: 20250313
  5. MUCINEX [Concomitant]
     Active Substance: GUAIFENESIN
     Indication: Accidental exposure to product
     Route: 065
     Dates: start: 20250327, end: 20250327
  6. COLCHICINE [Concomitant]
     Active Substance: COLCHICINE
     Indication: Pericardial effusion
     Route: 065
     Dates: start: 202412
  7. ZETIA [Concomitant]
     Active Substance: EZETIMIBE
     Indication: Blood cholesterol increased
     Route: 065
     Dates: start: 202412
  8. BRILINTA [Concomitant]
     Active Substance: TICAGRELOR
     Indication: Myocardial infarction
     Route: 065
     Dates: start: 202409
  9. BRILINTA [Concomitant]
     Active Substance: TICAGRELOR
     Indication: Coronary arterial stent insertion
  10. LOSARTAN [Concomitant]
     Active Substance: LOSARTAN
     Indication: Hypertension
     Route: 065
  11. ATORVASTATIN [Concomitant]
     Active Substance: ATORVASTATIN
     Indication: Blood cholesterol increased
     Route: 065
  12. XARELTO [Concomitant]
     Active Substance: RIVAROXABAN
     Indication: Atrial fibrillation
     Route: 065
     Dates: start: 2019
  13. OMEPRAZOLE [Concomitant]
     Active Substance: OMEPRAZOLE
     Indication: Gastrooesophageal reflux disease
     Route: 065
  14. ALBUTEROL [Concomitant]
     Active Substance: ALBUTEROL
     Indication: Wheezing
     Route: 065
     Dates: start: 2021
  15. MAGNESIUM OXIDE [Concomitant]
     Active Substance: MAGNESIUM OXIDE
     Indication: Routine health maintenance
     Route: 065
     Dates: start: 2021
  16. MAGNESIUM OXIDE [Concomitant]
     Active Substance: MAGNESIUM OXIDE
     Route: 065
     Dates: start: 2021

REACTIONS (1)
  - Extra dose administered [Recovered/Resolved]

NARRATIVE: CASE EVENT DATE: 20250327
